FAERS Safety Report 11153284 (Version 1)
Quarter: 2015Q2

REPORT INFORMATION
  Report Type: Spontaneous
  Country: US (occurrence: US)
  Receive Date: 20150601
  Receipt Date: 20150601
  Transmission Date: 20150821
  Serious: Yes (Other)
  Sender: FDA-Public Use
  Company Number: PHHY2015US062760

PATIENT
  Age: 50 Year
  Sex: Male

DRUGS (2)
  1. FLUTICASONE [Suspect]
     Active Substance: FLUTICASONE\FLUTICASONE PROPIONATE
     Indication: ASTHMA
     Route: 065
  2. RITONAVIR. [Suspect]
     Active Substance: RITONAVIR
     Indication: ANTIRETROVIRAL THERAPY
     Route: 065

REACTIONS (8)
  - Drug interaction [Unknown]
  - Weight increased [Unknown]
  - Cushingoid [Unknown]
  - Cushing^s syndrome [Unknown]
  - Oedema peripheral [Unknown]
  - Fat tissue increased [Unknown]
  - Lipodystrophy acquired [Unknown]
  - Osteonecrosis [Unknown]
